FAERS Safety Report 16907074 (Version 2)
Quarter: 2019Q4

REPORT INFORMATION
  Report Type: Spontaneous
  Country: IL (occurrence: IL)
  Receive Date: 20191011
  Receipt Date: 20191024
  Transmission Date: 20200122
  Serious: No
  Sender: FDA-Public Use
  Company Number: IL-GLAXOSMITHKLINE-IL2019EME181447

PATIENT

DRUGS (1)
  1. NUCALA [Suspect]
     Active Substance: MEPOLIZUMAB
     Indication: HYPEREOSINOPHILIC SYNDROME
     Dosage: 100 MG, UNK

REACTIONS (2)
  - Product use in unapproved indication [Unknown]
  - Blood creatine decreased [Unknown]
